FAERS Safety Report 9766063 (Version 1)
Quarter: 2013Q4

REPORT INFORMATION
  Report Type: Other
  Country: GB (occurrence: GB)
  Receive Date: 20131217
  Receipt Date: 20131217
  Transmission Date: 20140711
  Serious: Yes (Hospitalization)
  Sender: FDA-Public Use
  Company Number: GB-SHIRE-ALL1-2013-08595

PATIENT
  Age: 22 Year
  Sex: Female

DRUGS (1)
  1. VPRIV [Suspect]
     Indication: PRODUCT USED FOR UNKNOWN INDICATION
     Dosage: 3600 IU (NINE 400 UNIT VIALS), UNKNOWN
     Route: 041
     Dates: start: 20131106

REACTIONS (1)
  - Kidney infection [Recovering/Resolving]
